FAERS Safety Report 18777128 (Version 5)
Quarter: 2021Q1

REPORT INFORMATION
  Report Type: Report from Study
  Country: FR (occurrence: FR)
  Receive Date: 20210122
  Receipt Date: 20210318
  Transmission Date: 20210419
  Serious: Yes (Other)
  Sender: FDA-Public Use
  Company Number: FR-PFIZER INC-2019-05711

PATIENT
  Age: 61 Year
  Sex: Female

DRUGS (4)
  1. BINIMETINIB [Suspect]
     Active Substance: BINIMETINIB
     Dosage: UNK
     Dates: start: 20190513
  2. ENCORAFENIB [Suspect]
     Active Substance: ENCORAFENIB
     Dosage: UNK
     Dates: start: 20190513
  3. BINIMETINIB [Suspect]
     Active Substance: BINIMETINIB
     Indication: MALIGNANT MELANOMA
     Dosage: 45 MG, 2X/DAY
     Route: 048
     Dates: start: 20190507, end: 20190507
  4. ENCORAFENIB [Suspect]
     Active Substance: ENCORAFENIB
     Indication: MALIGNANT MELANOMA
     Dosage: 450 MG, 1X/DAY
     Route: 048
     Dates: start: 20190507, end: 20190507

REACTIONS (1)
  - Retinal detachment [Recovered/Resolved]

NARRATIVE: CASE EVENT DATE: 20190507
